FAERS Safety Report 7066607-0 (Version None)
Quarter: 2010Q4

REPORT INFORMATION
  Report Type: 
  Country: None (occurrence: None)
  Receive Date: 20101027
  Receipt Date: 20100614
  Transmission Date: 20110411
  Serious: Yes (Other)
  Sender: FDA-Public Use
  Company Number: US-WYE-H15652510

PATIENT
  Sex: Female

DRUGS (6)
  1. PREMPRO [Suspect]
  2. MEDROXYPROGESTERONE [Suspect]
  3. PROVERA [Suspect]
  4. CYCRIN [Suspect]
  5. ESTRACE [Suspect]
  6. PREMARIN [Suspect]

REACTIONS (1)
  - BREAST CANCER [None]
